FAERS Safety Report 21065320 (Version 1)
Quarter: 2022Q3

REPORT INFORMATION
  Report Type: Spontaneous
  Country: FR (occurrence: None)
  Receive Date: 20220711
  Receipt Date: 20220711
  Transmission Date: 20221027
  Serious: Yes (Death)
  Sender: FDA-Public Use
  Company Number: 2022A248839

PATIENT
  Age: 35 Year
  Sex: Female

DRUGS (3)
  1. QUETIAPINE [Suspect]
     Active Substance: QUETIAPINE
     Dosage: INCONNUE
     Route: 065
     Dates: end: 202111
  2. TRAMADOL [Suspect]
     Active Substance: TRAMADOL
     Dosage: INCONNUE
     Route: 065
     Dates: end: 202111
  3. VENLAFAXINE [Suspect]
     Active Substance: VENLAFAXINE HYDROCHLORIDE
     Dosage: INCONNUE
     Route: 065
     Dates: end: 202111

REACTIONS (1)
  - Poisoning deliberate [Fatal]
